FAERS Safety Report 20044644 (Version 1)
Quarter: 2021Q4

REPORT INFORMATION
  Report Type: Spontaneous
  Country: CA (occurrence: CA)
  Receive Date: 20211108
  Receipt Date: 20211108
  Transmission Date: 20220303
  Serious: Yes (Other)
  Sender: FDA-Public Use
  Company Number: CA-TEVA-2021-CA-1973489

PATIENT
  Sex: Male

DRUGS (1)
  1. VENLAFAXINE HYDROCHLORIDE [Suspect]
     Active Substance: VENLAFAXINE HYDROCHLORIDE
     Indication: Product used for unknown indication
     Route: 065

REACTIONS (10)
  - Amnesia [Unknown]
  - Cardiac disorder [Unknown]
  - Disturbance in attention [Unknown]
  - Fatigue [Unknown]
  - General physical health deterioration [Unknown]
  - Mental impairment [Unknown]
  - Motor dysfunction [Unknown]
  - Obesity [Unknown]
  - Respiratory disorder [Unknown]
  - Sleep apnoea syndrome [Unknown]
